FAERS Safety Report 21233468 (Version 1)
Quarter: 2022Q3

REPORT INFORMATION
  Report Type: Report from Study
  Country: US (occurrence: US)
  Receive Date: 20220819
  Receipt Date: 20220819
  Transmission Date: 20221027
  Serious: Yes (Disabling)
  Sender: FDA-Public Use
  Company Number: US-BRISTOL-MYERS SQUIBB COMPANY-2022-088483

PATIENT
  Age: 75 Year
  Sex: Female
  Weight: 86.18 kg

DRUGS (4)
  1. ORENCIA [Suspect]
     Active Substance: ABATACEPT
     Indication: Rheumatoid arthritis
     Route: 042
     Dates: start: 2015
  2. ORENCIA [Suspect]
     Active Substance: ABATACEPT
  3. GABAPENTIN [Concomitant]
     Active Substance: GABAPENTIN
     Indication: Product used for unknown indication
     Dosage: 300MG 1 CAPSULE EVERY 3 HOUR
     Route: 065
  4. ZESTORETIC [Concomitant]
     Active Substance: HYDROCHLOROTHIAZIDE\LISINOPRIL
     Indication: Product used for unknown indication
     Dosage: 20/25MG TABLETS TWO A DAY
     Route: 065

REACTIONS (1)
  - Spinal disorder [Unknown]
